FAERS Safety Report 8822146 (Version 1)
Quarter: 2012Q4

REPORT INFORMATION
  Report Type: 
  Country: US (occurrence: US)
  Receive Date: 20121003
  Receipt Date: 20121003
  Transmission Date: 20130627
  Serious: No
  Sender: FDA-Public Use
  Company Number: US-BAYER-2012-095311

PATIENT
  Sex: Female

DRUGS (2)
  1. BEYAZ [Suspect]
     Indication: ACNE
     Dosage: UNK
     Dates: start: 201203
  2. SOLODYN [Concomitant]
     Indication: ACNE
     Dosage: UNK
     Dates: start: 201208

REACTIONS (1)
  - Acne [None]
